FAERS Safety Report 25146202 (Version 1)
Quarter: 2025Q2

REPORT INFORMATION
  Report Type: Spontaneous
  Country: CN (occurrence: CN)
  Receive Date: 20250401
  Receipt Date: 20250401
  Transmission Date: 20250716
  Serious: Yes (Hospitalization, Other)
  Sender: Haleon PLC
  Company Number: CN-HALEON-2235538

PATIENT
  Age: 49 Year
  Sex: Male
  Weight: 53 kg

DRUGS (3)
  1. IBUPROFEN [Suspect]
     Active Substance: IBUPROFEN
     Indication: Pyrexia
     Dosage: SUSTAINED - RELEASE CAPSULES
     Route: 048
     Dates: start: 20250320, end: 20250325
  2. ACETAMINOPHEN\CAFFEINE\CHLORPHENIRAMINE\HERBALS [Suspect]
     Active Substance: ACETAMINOPHEN\CAFFEINE\CHLORPHENIRAMINE\HERBALS
     Indication: Pyrexia
     Route: 048
     Dates: start: 20250320, end: 20250325
  3. ACETAMINOPHEN [Suspect]
     Active Substance: ACETAMINOPHEN
     Indication: Pyrexia
     Route: 048
     Dates: start: 20250320, end: 20250325

REACTIONS (10)
  - Ocular icterus [Not Recovered/Not Resolved]
  - Yellow skin [Not Recovered/Not Resolved]
  - Hepatic failure [Unknown]
  - Jaundice cholestatic [Unknown]
  - Mucosal disorder [Not Recovered/Not Resolved]
  - Abdominal distension [Unknown]
  - Hepatic function abnormal [Unknown]
  - Abdominal tenderness [Unknown]
  - Abdominal pain [Unknown]
  - Pyrexia [Unknown]

NARRATIVE: CASE EVENT DATE: 20250321
